FAERS Safety Report 4460152-4 (Version None)
Quarter: 2004Q3

REPORT INFORMATION
  Report Type: 
  Country: None (occurrence: None)
  Receive Date: 20040928
  Receipt Date: 20040106
  Transmission Date: 20050211
  Serious: No
  Sender: FDA-Public Use
  Company Number: US-GLAXOSMITHKLINE-A0491770A

PATIENT
  Sex: Female

DRUGS (3)
  1. SEREVENT [Suspect]
     Indication: ASTHMA
     Route: 055
  2. ACCOLATE [Concomitant]
     Dosage: 1TAB TWICE PER DAY
     Route: 048
  3. AZMACORT [Concomitant]
     Dosage: 2PUFF TWICE PER DAY
     Route: 055

REACTIONS (2)
  - HOARSENESS [None]
  - PHARYNGOLARYNGEAL PAIN [None]
